FAERS Safety Report 13347945 (Version 2)
Quarter: 2017Q2

REPORT INFORMATION
  Report Type: Spontaneous
  Country: JP (occurrence: JP)
  Receive Date: 20170318
  Receipt Date: 20170421
  Transmission Date: 20170830
  Serious: Yes (Hospitalization)
  Sender: FDA-Public Use
  Company Number: JP-AMGEN-JPNSP2017041977

PATIENT
  Sex: Male

DRUGS (2)
  1. VECTIBIX [Suspect]
     Active Substance: PANITUMUMAB
     Indication: COLON CANCER
     Dosage: 6.0 MG/KG, Q2WEEKS
     Route: 041
     Dates: start: 201702
  2. VECTIBIX [Suspect]
     Active Substance: PANITUMUMAB
     Dosage: 6.0 MG/KG, Q2WEEKS
     Route: 041
     Dates: start: 201703

REACTIONS (2)
  - Platelet count decreased [Unknown]
  - Haemoglobin decreased [Recovered/Resolved]

NARRATIVE: CASE EVENT DATE: 20170310
